FAERS Safety Report 7459463-X (Version None)
Quarter: 2011Q2

REPORT INFORMATION
  Report Type: 
  Country: None (occurrence: None)
  Receive Date: 20110504
  Receipt Date: 20110504
  Transmission Date: 20111010
  Serious: Yes (Hospitalization)
  Sender: FDA-Public Use
  Company Number: None

PATIENT
  Age: 19 Year
  Sex: Female
  Weight: 59.6 kg

DRUGS (1)
  1. INFLIXIMAB 100MG VIALS [Suspect]
     Indication: COLITIS
     Dosage: 300 MG ONCE IV  SLOWLY TITRATED
     Route: 042
     Dates: start: 20110105, end: 20110105

REACTIONS (3)
  - NECK PAIN [None]
  - SALIVARY GLAND ENLARGEMENT [None]
  - LOCAL SWELLING [None]
